FAERS Safety Report 24239038 (Version 1)
Quarter: 2024Q3

REPORT INFORMATION
  Report Type: Spontaneous
  Country: US (occurrence: None)
  Receive Date: 20240822
  Receipt Date: 20240822
  Transmission Date: 20241017
  Serious: Yes (Hospitalization, Disabling, Other)
  Sender: ASTRAZENECA
  Company Number: 2024A187216

PATIENT
  Sex: Female

DRUGS (1)
  1. PULMICORT TURBUHALER [Suspect]
     Active Substance: BUDESONIDE
     Route: 055

REACTIONS (11)
  - Infection [Unknown]
  - Deafness [Unknown]
  - Asthenia [Unknown]
  - Joint contracture [Unknown]
  - Neurodevelopmental disorder [Unknown]
  - Hypotonia [Unknown]
  - Neuropathy peripheral [Unknown]
  - Chronic respiratory disease [Unknown]
  - Developmental delay [Unknown]
  - Dysphagia [Unknown]
  - Neuromuscular scoliosis [Unknown]
